FAERS Safety Report 4519179-6 (Version None)
Quarter: 2004Q4

REPORT INFORMATION
  Report Type: 
  Country: None (occurrence: None)
  Receive Date: 20041206
  Receipt Date: 20041130
  Transmission Date: 20050328
  Serious: Yes (Other)
  Sender: FDA-Public Use
  Company Number: GR-ROCHE-387961

PATIENT
  Sex: Male
  Weight: 170 kg

DRUGS (1)
  1. XENICAL [Suspect]
     Indication: OBESITY
     Route: 048
     Dates: end: 20041129

REACTIONS (1)
  - CHOLELITHIASIS [None]
